FAERS Safety Report 22959195 (Version 2)
Quarter: 2025Q3

REPORT INFORMATION
  Report Type: Report from Study
  Country: US (occurrence: US)
  Receive Date: 20230920
  Receipt Date: 20250915
  Transmission Date: 20251021
  Serious: Yes (Other)
  Sender: ABBVIE
  Company Number: US-ABBVIE-5408259

PATIENT
  Sex: Female

DRUGS (3)
  1. HUMIRA [Suspect]
     Active Substance: ADALIMUMAB
     Indication: Crohn^s disease
     Route: 058
     Dates: start: 20220816
  2. HUMIRA [Suspect]
     Active Substance: ADALIMUMAB
     Route: 058
  3. CREON [Suspect]
     Active Substance: PANCRELIPASE AMYLASE\PANCRELIPASE LIPASE\PANCRELIPASE PROTEASE
     Indication: Product used for unknown indication
     Route: 048
     Dates: start: 20241218

REACTIONS (4)
  - Macular degeneration [Not Recovered/Not Resolved]
  - Asthenia [Recovering/Resolving]
  - Oropharyngeal pain [Recovering/Resolving]
  - Cough [Unknown]
